FAERS Safety Report 8364840-9 (Version None)
Quarter: 2012Q1

REPORT INFORMATION
  Report Type: 
  Country: None (occurrence: None)
  Receive Date: 20120323
  Receipt Date: 20111110
  Transmission Date: 20120608
  Serious: Yes (Hospitalization)
  Sender: FDA-Public Use
  Company Number: 163-21880-11111704

PATIENT
  Age: 82 Year
  Sex: Male

DRUGS (1)
  1. REVLIMID [Suspect]
     Indication: MONOCLONAL GAMMOPATHY
     Dosage: 15 MG, DAILY X 21 DAYS, THEN 7 DAYS OFF, PO
     Route: 048
     Dates: start: 20110719

REACTIONS (1)
  - ATRIAL FIBRILLATION [None]
